FAERS Safety Report 13174374 (Version 4)
Quarter: 2017Q3

REPORT INFORMATION
  Report Type: Spontaneous
  Country: NO (occurrence: NO)
  Receive Date: 20170201
  Receipt Date: 20170908
  Transmission Date: 20171127
  Serious: Yes (Other)
  Sender: FDA-Public Use
  Company Number: NO-PFIZER INC-2017042990

PATIENT
  Age: 42 Year
  Sex: Male

DRUGS (10)
  1. CIPROFLOXACIN. [Concomitant]
     Active Substance: CIPROFLOXACIN
  2. ETOPOSIDE. [Suspect]
     Active Substance: ETOPOSIDE
     Indication: BONE MARROW CONDITIONING REGIMEN
     Dosage: UNK
  3. MELPHALAN. [Suspect]
     Active Substance: MELPHALAN
     Indication: BONE MARROW CONDITIONING REGIMEN
     Dosage: UNK
  4. OMEPRAZOLE MYLAN [Concomitant]
     Active Substance: OMEPRAZOLE
  5. TRIMETHOPRIM MYLAN [Concomitant]
     Active Substance: TRIMETHOPRIM
  6. CARMUSTINE MYLAN [Suspect]
     Active Substance: CARMUSTINE
     Indication: BONE MARROW CONDITIONING REGIMEN
     Dosage: UNK
  7. FLUCONAZOLE MYLAN [Concomitant]
     Active Substance: FLUCONAZOLE
  8. CYTARABINE. [Suspect]
     Active Substance: CYTARABINE
     Indication: BONE MARROW CONDITIONING REGIMEN
     Dosage: UNK
  9. ANTITHYMOCYTE IMMUNOGLOBULIN [Concomitant]
     Active Substance: THYMOCYTE IMMUNE GLOBULIN NOS
     Dosage: UNK
  10. ACICLOVIR MYLAN [Concomitant]
     Active Substance: ACYCLOVIR

REACTIONS (1)
  - Expanded disability status scale score increased [Not Recovered/Not Resolved]
